FAERS Safety Report 7667301-5 (Version None)
Quarter: 2011Q3

REPORT INFORMATION
  Report Type: 
  Country: None (occurrence: None)
  Receive Date: 20110806
  Receipt Date: 20110707
  Transmission Date: 20111222
  Serious: No
  Sender: FDA-Public Use
  Company Number: US-ABBOTT-11P-163-0836543-00

PATIENT
  Sex: Female
  Weight: 74.91 kg

DRUGS (10)
  1. LORAZEPAM [Concomitant]
     Indication: PANIC ATTACK
     Dosage: NOT REPORTED
  2. TRAZODONE HCL [Concomitant]
     Indication: INSOMNIA
     Dosage: NOT REPORTED
  3. NIASPAN [Suspect]
     Indication: BLOOD CHOLESTEROL INCREASED
     Dosage: 500 MG QHS
  4. CHOLESTRYAMINE [Concomitant]
     Indication: BLOOD CHOLESTEROL INCREASED
     Dosage: NOT REPORTED
  5. ESTRADIOL [Concomitant]
     Indication: INSOMNIA
  6. OMEPRAZOLE [Concomitant]
     Indication: GASTROOESOPHAGEAL REFLUX DISEASE
     Dosage: NOT REPORTED
  7. IBUPROFEN [Concomitant]
     Indication: ARTHRITIS
     Dosage: NOT REPORTED
  8. ENALAPRIL MALEATE [Concomitant]
     Indication: HYPERTENSION
     Dosage: NOT REPORTED
  9. ESTRADIOL [Concomitant]
     Indication: HORMONE REPLACEMENT THERAPY
     Dosage: NOT REPORTED
  10. ZYRTEC [Concomitant]
     Indication: HYPERSENSITIVITY
     Dosage: NOT REPORTED

REACTIONS (1)
  - NAUSEA [None]
